FAERS Safety Report 15859880 (Version 1)
Quarter: 2019Q1

REPORT INFORMATION
  Report Type: Report from Study
  Country: US (occurrence: US)
  Receive Date: 20190123
  Receipt Date: 20190123
  Transmission Date: 20190417
  Serious: Yes (Death, Hospitalization)
  Sender: FDA-Public Use
  Company Number: US-ACTELION-A-US2017-148029

PATIENT
  Age: 73 Year
  Sex: Female
  Weight: 45.81 kg

DRUGS (18)
  1. LASIX [Concomitant]
     Active Substance: FUROSEMIDE
  2. BROVANA [Concomitant]
     Active Substance: ARFORMOTEROL TARTRATE
  3. OPSUMIT [Suspect]
     Active Substance: MACITENTAN
     Indication: PULMONARY ARTERIAL HYPERTENSION
     Dosage: 10 MG, QD
     Route: 048
     Dates: start: 20161215
  4. DUONEB [Concomitant]
     Active Substance: ALBUTEROL SULFATE\IPRATROPIUM BROMIDE
  5. XANAX [Concomitant]
     Active Substance: ALPRAZOLAM
     Dosage: UNK
  6. BUDESONIDE. [Concomitant]
     Active Substance: BUDESONIDE
     Dosage: UNK, BID
  7. POTASSIUM [Concomitant]
     Active Substance: POTASSIUM
     Dosage: 20 MG, UNK
  8. VENTOLIN [Concomitant]
     Active Substance: ALBUTEROL SULFATE
     Dosage: UNK, Q4HRS
  9. TUDORZA GENUAIR [Concomitant]
     Active Substance: ACLIDINIUM BROMIDE
     Dosage: UNK, BID
  10. PREDNISONE. [Concomitant]
     Active Substance: PREDNISONE
     Dosage: 10 MG, QD
  11. FOLIC ACID. [Concomitant]
     Active Substance: FOLIC ACID
     Dosage: 1 MG, UNK
  12. ATORVASTATIN [Concomitant]
     Active Substance: ATORVASTATIN
     Dosage: 40 MG, UNK
  13. METOPROLOL. [Concomitant]
     Active Substance: METOPROLOL
     Dosage: 50 MG, UNK
  14. TRAZODONE [Concomitant]
     Active Substance: TRAZODONE HYDROCHLORIDE
  15. ADCIRCA [Concomitant]
     Active Substance: TADALAFIL
  16. ACETAZOLAMIDE. [Concomitant]
     Active Substance: ACETAZOLAMIDE
  17. THIAMINE. [Concomitant]
     Active Substance: THIAMINE
     Dosage: 100 MG, UNK
  18. ALBUTEROL. [Concomitant]
     Active Substance: ALBUTEROL
     Dosage: 2.5 MG, PRN

REACTIONS (8)
  - Oedema peripheral [Not Recovered/Not Resolved]
  - Death [Fatal]
  - Chronic obstructive pulmonary disease [Recovered/Resolved]
  - Oropharyngeal pain [Recovered/Resolved]
  - Asthenia [Unknown]
  - Dizziness [Unknown]
  - Dyspnoea [Recovered/Resolved]
  - Wheezing [Recovered/Resolved]

NARRATIVE: CASE EVENT DATE: 20161218
